FAERS Safety Report 7292819-7 (Version None)
Quarter: 2011Q1

REPORT INFORMATION
  Report Type: 
  Country: None (occurrence: None)
  Receive Date: 20110210
  Receipt Date: 20110210
  Transmission Date: 20110831
  Serious: Yes (Hospitalization)
  Sender: FDA-Public Use
  Company Number: None

PATIENT
  Age: 86 Year
  Sex: Male
  Weight: 70.93 kg

DRUGS (1)
  1. CILOSTAZOL [Suspect]
     Indication: PERCUTANEOUS CORONARY INTERVENTION
     Dosage: 50 MG TWICE DAILY PO
     Route: 048
     Dates: start: 20110114, end: 20110117

REACTIONS (14)
  - ABDOMINAL PAIN [None]
  - HAEMATOCRIT DECREASED [None]
  - ABNORMAL FAECES [None]
  - PLATELET AGGREGATION DECREASED [None]
  - DIZZINESS [None]
  - DYSPEPSIA [None]
  - NAUSEA [None]
  - PLATELET COUNT DECREASED [None]
  - PRESYNCOPE [None]
  - DIARRHOEA HAEMORRHAGIC [None]
  - VOMITING [None]
  - RED BLOOD CELL COUNT DECREASED [None]
  - HAEMOGLOBIN DECREASED [None]
  - COLITIS ULCERATIVE [None]
